FAERS Safety Report 5828831-1 (Version None)
Quarter: 2008Q3

REPORT INFORMATION
  Report Type: 
  Country: None (occurrence: None)
  Receive Date: 20080729
  Receipt Date: 20080729
  Transmission Date: 20090109
  Serious: Yes (Hospitalization)
  Sender: FDA-Public Use
  Company Number: None

PATIENT
  Age: 53 Year
  Sex: Male
  Weight: 66.2 kg

DRUGS (1)
  1. CISPLATIN [Suspect]
     Dosage: 160 MG IV
     Route: 042
     Dates: start: 20080110, end: 20080113

REACTIONS (5)
  - DELIRIUM [None]
  - HYPONATRAEMIA [None]
  - NAUSEA [None]
  - RENAL FAILURE ACUTE [None]
  - VOMITING [None]
